FAERS Safety Report 18638902 (Version 2)
Quarter: 2021Q1

REPORT INFORMATION
  Report Type: Spontaneous
  Country: US (occurrence: US)
  Receive Date: 20201218
  Receipt Date: 20210105
  Transmission Date: 20210419
  Serious: Yes (Other)
  Sender: FDA-Public Use
  Company Number: US-PFIZER INC-2020483648

PATIENT
  Age: 64 Year
  Sex: Female
  Weight: 64.41 kg

DRUGS (3)
  1. FAMOTIDINE. [Concomitant]
     Active Substance: FAMOTIDINE
     Dosage: UNK
     Route: 065
  2. ELIQUIS [Suspect]
     Active Substance: APIXABAN
     Indication: DEEP VEIN THROMBOSIS
     Dosage: UNK
     Route: 065
  3. IBRANCE [Suspect]
     Active Substance: PALBOCICLIB
     Indication: OSTEOARTHRITIS
     Dosage: 100MG, 21 DAYS ON, 1 WEEK OFF
     Route: 048
     Dates: start: 20200910

REACTIONS (1)
  - Pneumonitis [Unknown]
